FAERS Safety Report 4536978-5 (Version None)
Quarter: 2004Q4

REPORT INFORMATION
  Report Type: 
  Country: None (occurrence: None)
  Receive Date: 20041223
  Receipt Date: 20041216
  Transmission Date: 20050328
  Serious: Yes (Other)
  Sender: FDA-Public Use
  Company Number: PHBS2004TW17101

PATIENT
  Age: 56 Year
  Sex: Male

DRUGS (5)
  1. CYCLOSPORINE [Suspect]
     Indication: HEART TRANSPLANT
     Dosage: 50 MG/D
  2. CYCLOSPORINE [Suspect]
     Dosage: 100 MG/D
  3. RIFAMPICIN [Suspect]
  4. AZATHIOPRINE [Concomitant]
     Indication: HEART TRANSPLANT
  5. PREDNISOLONE [Concomitant]
     Indication: HEART TRANSPLANT

REACTIONS (6)
  - ARTHRALGIA [None]
  - DISSEMINATED TUBERCULOSIS [None]
  - DRUG INTERACTION [None]
  - HEART TRANSPLANT REJECTION [None]
  - HEPATITIS [None]
  - JOINT SWELLING [None]
